FAERS Safety Report 6299489-5 (Version None)
Quarter: 2009Q3

REPORT INFORMATION
  Report Type: 
  Country: None (occurrence: None)
  Receive Date: 20090806
  Receipt Date: 20090728
  Transmission Date: 20100115
  Serious: Yes (Hospitalization)
  Sender: FDA-Public Use
  Company Number: B0586730A

PATIENT
  Age: 53 Year
  Sex: Female

DRUGS (5)
  1. LAMOTRIGINE [Suspect]
     Indication: COMPLEX PARTIAL SEIZURES
     Dosage: 40MG PER DAY
     Route: 048
     Dates: start: 20080101
  2. OXCARBAZEPINE [Suspect]
     Indication: COMPLEX PARTIAL SEIZURES
     Route: 048
     Dates: start: 20080101
  3. FUROSEMIDA [Suspect]
     Indication: DRUG USE FOR UNKNOWN INDICATION
     Route: 048
  4. CARVEDILOL [Concomitant]
     Indication: DRUG USE FOR UNKNOWN INDICATION
     Route: 065
     Dates: start: 20080101
  5. OMEPRAZOL [Concomitant]
     Route: 048
     Dates: start: 20080101

REACTIONS (1)
  - HYPONATRAEMIA [None]
